FAERS Safety Report 26151083 (Version 1)
Quarter: 2025Q4

REPORT INFORMATION
  Report Type: Spontaneous
  Country: GB (occurrence: GB)
  Receive Date: 20251212
  Receipt Date: 20251212
  Transmission Date: 20260117
  Serious: Yes (Hospitalization, Other)
  Sender: BAYER HEALTHCARE PHARMACEUTICALS INC.
  Company Number: None

PATIENT
  Age: 87 Year
  Sex: Female

DRUGS (31)
  1. CIPROFLOXACIN [Suspect]
     Active Substance: CIPROFLOXACIN
     Dosage: CIPROFLOXACIN  (CIPRO) 750MG TWICE A DAY (BD)
     Route: 048
  2. BUDESONIDE\FORMOTEROL FUMARATE [Concomitant]
     Active Substance: BUDESONIDE\FORMOTEROL FUMARATE
     Dosage: TWO DOSES TO BE INHALED TWICE A DAY
  3. METHENAMINE [Concomitant]
     Active Substance: METHENAMINE
     Dosage: 1 G, BID
  4. ACETAMINOPHEN [Concomitant]
     Active Substance: ACETAMINOPHEN
     Dosage: TWO TO BE TAKEN EVERY 4-6 HOURS UP TO FOUR TIMES A DAY
  5. E 45 itch relief [Concomitant]
     Dosage: TWICE A DAY
  6. MORPHINE SULFATE [Concomitant]
     Active Substance: MORPHINE SULFATE
     Dosage: 2.5 MLS EVERY 6 HOURS
  7. CALCIUM CARBONATE\CHOLECALCIFEROL [Concomitant]
     Active Substance: CALCIUM CARBONATE\CHOLECALCIFEROL
     Dosage: 1 DF, QD
  8. FERROUS FUMARATE [Concomitant]
     Active Substance: FERROUS FUMARATE
     Dosage: 210 MG, QD
  9. Pregabalin ab [Concomitant]
     Dosage: ONE TO BE TAKEN IN THE MORNING, THEN TAKE TWO AT NIGHT TIME
     Route: 048
  10. SERTRALINE [Concomitant]
     Active Substance: SERTRALINE HYDROCHLORIDE
     Dosage: 100 MG, BID
  11. THEOPHYLLINE ANHYDROUS [Concomitant]
     Active Substance: THEOPHYLLINE ANHYDROUS
     Dosage: 200 MG, BID
     Route: 048
  12. SENNA [Concomitant]
     Active Substance: SENNOSIDES
     Indication: Constipation
     Dosage: ONE OR TWO AT NIGHT AS REQUIRED
     Route: 048
  13. ALBUTEROL [Concomitant]
     Active Substance: ALBUTEROL
     Dosage: TWO PUFFS FOUR TIMES A DAY AS REQUIRED
  14. FOLIC ACID [Concomitant]
     Active Substance: FOLIC ACID
     Dosage: TAKE ONE TABLET MONDAY WEDNEDAY FRIDAY LONG TERM
     Route: 048
  15. CLARITHROMYCIN [Concomitant]
     Active Substance: CLARITHROMYCIN
     Dosage: 500 MG, BID
     Route: 048
  16. SPIRIVA RESPIMAT [Concomitant]
     Active Substance: TIOTROPIUM BROMIDE
     Dosage: TWO PUFFS TO BE INHALED ONCE DAILY
  17. FEXOFENADINE [Concomitant]
     Active Substance: FEXOFENADINE HYDROCHLORIDE
     Dosage: 180 MG, QD
  18. APIXABAN [Concomitant]
     Active Substance: APIXABAN
     Dosage: 2.5 MG, BID
  19. CLOBETASOL [Concomitant]
     Active Substance: CLOBETASOL
     Dosage: TWICE A DAY FOR 4 WEEKS , THEN ONCE A DAY FOR 4 WEEKS THEN ALT DAYS FOR 4 WEEKS THEN CONTACT FOR REV
  20. POLYETHYLENE GLYCOL 3350\POTASSIUM CHLORIDE\SODIUM BICARBONATE\SODIUM [Concomitant]
     Active Substance: POLYETHYLENE GLYCOL 3350\POTASSIUM CHLORIDE\SODIUM BICARBONATE\SODIUM CHLORIDE
     Dosage: ONE OR TWO SACHETS A DAY AS REQUIRED
  21. ESTRADIOL [Concomitant]
     Active Substance: ESTRADIOL
     Dosage: AS PER GYNAE CLINIC-INSERT NIGHTLY FOR 4 WEEKS, THEN EVERY OTHER NIGHT FOR 4 WEEKS, THEN TWICE WEEKL
     Route: 067
  22. Carbocisteine co [Concomitant]
     Dosage: TWO CAPSULES THREE TIMES A DAY
     Route: 048
  23. PREDNISOLONE [Concomitant]
     Active Substance: PREDNISOLONE
     Dosage: 6 DF, QD
     Route: 048
  24. Proshield plus [Concomitant]
     Dosage: AS DIRECTED
  25. BISOPROLOL [Concomitant]
     Active Substance: BISOPROLOL
     Dosage: 1.25 MG, QD
     Route: 048
  26. LANSOPRAZOLE [Concomitant]
     Active Substance: LANSOPRAZOLE
     Dosage: 30 MG, OM
     Route: 048
  27. THIAMINE [Concomitant]
     Active Substance: THIAMINE
     Dosage: 100 MG, TID
     Route: 048
  28. Epimax oatmeal [Concomitant]
     Dosage: APPLY 3 TIMES A DAY AS NECESSARY
  29. IBUPROFEN [Concomitant]
     Active Substance: IBUPROFEN
     Dosage: APPLY UP TO THREE TIMES A DAY
  30. TRIMOVATE [Concomitant]
     Active Substance: CLOBETASONE BUTYRATE\NYSTATIN\OXYTETRACYCLINE CALCIUM
     Dosage: TWICE DAILY X 7 DAYS 30 GRAM
  31. DOXYCYCLINE [Concomitant]
     Active Substance: DOXYCYCLINE
     Dosage: TWO TO BE TAKEN ON THE FIRST DAY THEN ONE TO BE TAKEN EACH DAY 8 CAPSULE
     Route: 048

REACTIONS (1)
  - Aortic dissection [Unknown]
